APPROVED DRUG PRODUCT: LORAZEPAM
Active Ingredient: LORAZEPAM
Strength: 2MG
Dosage Form/Route: TABLET;ORAL
Application: A071039 | Product #001
Applicant: WARNER CHILCOTT DIV WARNER LAMBERT CO
Approved: Jan 12, 1988 | RLD: No | RS: No | Type: DISCN